FAERS Safety Report 13903704 (Version 2)
Quarter: 2017Q3

REPORT INFORMATION
  Report Type: Spontaneous
  Country: US (occurrence: US)
  Receive Date: 20170824
  Receipt Date: 20170922
  Transmission Date: 20171127
  Serious: Yes (Death, Other)
  Sender: FDA-Public Use
  Company Number: US-INCYTE CORPORATION-2017IN007064

PATIENT

DRUGS (2)
  1. JAKAFI [Suspect]
     Active Substance: RUXOLITINIB
     Indication: POLYCYTHAEMIA VERA
     Dosage: 10 MG, BID
     Route: 048
     Dates: start: 20150107
  2. MORPHINE [Concomitant]
     Active Substance: MORPHINE
     Indication: PRODUCT USED FOR UNKNOWN INDICATION

REACTIONS (2)
  - Death [Fatal]
  - Hepatic cancer [Unknown]

NARRATIVE: CASE EVENT DATE: 20170901
